FAERS Safety Report 24809840 (Version 2)
Quarter: 2025Q1

REPORT INFORMATION
  Report Type: Spontaneous
  Country: IN (occurrence: IN)
  Receive Date: 20250106
  Receipt Date: 20250212
  Transmission Date: 20250409
  Serious: Yes (Disabling)
  Sender: ACCORD
  Company Number: IN-MLMSERVICE-20241223-PI318762-00295-1

PATIENT
  Age: 40 Year
  Sex: Male
  Weight: 68 kg

DRUGS (2)
  1. SERTRALINE HYDROCHLORIDE [Suspect]
     Active Substance: SERTRALINE HYDROCHLORIDE
     Indication: Obsessive-compulsive disorder
     Route: 048
  2. SERTRALINE HYDROCHLORIDE [Suspect]
     Active Substance: SERTRALINE HYDROCHLORIDE
     Indication: Obsessive-compulsive disorder
     Route: 048

REACTIONS (1)
  - Deafness neurosensory [Recovered/Resolved]
